FAERS Safety Report 13952128 (Version 2)
Quarter: 2017Q4

REPORT INFORMATION
  Report Type: Spontaneous
  Country: IT (occurrence: IT)
  Receive Date: 20170910
  Receipt Date: 20171014
  Transmission Date: 20180320
  Serious: Yes (Other)
  Sender: FDA-Public Use
  Company Number: IT-BRISTOL-MYERS SQUIBB COMPANY-BMS-2017-077510

PATIENT
  Age: 80 Year
  Sex: Female

DRUGS (1)
  1. COUMADIN [Suspect]
     Active Substance: WARFARIN SODIUM
     Indication: ATRIAL FIBRILLATION
     Dosage: 5 MG, UNK
     Route: 048

REACTIONS (5)
  - Pain in extremity [Unknown]
  - Overdose [Unknown]
  - International normalised ratio abnormal [Unknown]
  - Oedema peripheral [Unknown]
  - Spontaneous haematoma [Unknown]

NARRATIVE: CASE EVENT DATE: 20170819
